FAERS Safety Report 19260252 (Version 2)
Quarter: 2021Q2

REPORT INFORMATION
  Report Type: Spontaneous
  Country: CH (occurrence: CH)
  Receive Date: 20210514
  Receipt Date: 20210519
  Transmission Date: 20210717
  Serious: Yes (Hospitalization, Other)
  Sender: FDA-Public Use
  Company Number: CH-TEVA-2021-CH-1910414

PATIENT
  Age: 41 Year
  Sex: Male

DRUGS (4)
  1. DIPIPERONE [Concomitant]
     Active Substance: PIPAMPERONE
     Route: 065
  2. METOPROLOL?MEPHA 50MG [Suspect]
     Active Substance: METOPROLOL SUCCINATE
     Route: 065
  3. AMISULPRIDE ZENTIVA 100MG [Concomitant]
     Dosage: 100 MILLIGRAM DAILY; MORNING
     Route: 065
  4. RISPERIDONE. [Concomitant]
     Active Substance: RISPERIDONE
     Dosage: 1MG IN THE MORNING, 2MG IN THE EVENING
     Route: 065

REACTIONS (11)
  - Erectile dysfunction [Unknown]
  - Insomnia [Unknown]
  - Anxiety [Unknown]
  - Muscle spasms [Unknown]
  - Depressed mood [Unknown]
  - Psychotic disorder [Unknown]
  - Depressed level of consciousness [Unknown]
  - Balance disorder [Unknown]
  - Schizophrenia [Unknown]
  - Hallucination [Unknown]
  - Confusional state [Unknown]

NARRATIVE: CASE EVENT DATE: 2020
